FAERS Safety Report 6886084-X (Version None)
Quarter: 2010Q3

REPORT INFORMATION
  Report Type: 
  Country: None (occurrence: None)
  Receive Date: 20100729
  Receipt Date: 20090122
  Transmission Date: 20110219
  Serious: Yes (Hospitalization, Other)
  Sender: FDA-Public Use
  Company Number: US-PFIZER INC-2009159643

PATIENT
  Sex: Male
  Weight: 103 kg

DRUGS (11)
  1. CELEBREX [Suspect]
     Dosage: 200 MG, 1X/DAY
     Dates: start: 20050516, end: 20050101
  2. BEXTRA [Suspect]
     Dosage: 20 MG, 1X/DAY
     Dates: start: 20030925, end: 20050125
  3. DEPAKOTE [Concomitant]
  4. HYDROCHLOROTHIAZIDE [Concomitant]
     Dosage: 25 MG, 1X/DAY
     Route: 048
  5. REMERON [Concomitant]
     Dosage: 30 MG, 1X/DAY
     Route: 048
  6. PREVACID [Concomitant]
     Dosage: 30 MG, 1X/DAY
     Route: 048
  7. COMPAZINE [Concomitant]
     Indication: NAUSEA
     Dosage: 10 MG, UNK
  8. PROMETHAZINE [Concomitant]
     Dosage: 25 MG, UNK
  9. ATARAX [Concomitant]
     Dosage: 50 MG, UNK
  10. NEURONTIN [Concomitant]
     Dosage: 600 MG, 2X/DAY
  11. PEPCID AC [Concomitant]

REACTIONS (1)
  - MYOCARDIAL INFARCTION [None]
